FAERS Safety Report 10089808 (Version 2)
Quarter: 2014Q2

REPORT INFORMATION
  Report Type: Spontaneous
  Country: CA (occurrence: CA)
  Receive Date: 20140421
  Receipt Date: 20140421
  Transmission Date: 20141212
  Serious: Yes (Other)
  Sender: FDA-Public Use
  Company Number: PHHY2014CA030582

PATIENT
  Sex: Female

DRUGS (11)
  1. AGRIFLU [Suspect]
     Indication: IMMUNISATION
     Dosage: 1 DF
     Route: 065
     Dates: start: 201310, end: 201310
  2. PREDNISOLONE [Suspect]
     Indication: EYE INFLAMMATION
     Dosage: 1% DRP, EVERY 2 HOURS
     Route: 047
  3. PREDNISOLONE [Suspect]
     Indication: HEADACHE
     Dosage: 1 % DRP, EVERY 2 HOURS
     Route: 047
     Dates: start: 20131209
  4. PREDNISOLONE [Suspect]
     Dosage: 1 % DRP, EVERY 3 HOURS
     Route: 047
  5. PREDNISOLONE [Suspect]
     Dosage: 3-4 TIMES A DAY
     Route: 047
     Dates: start: 201403
  6. PREDNISOLONE [Suspect]
     Dosage: EYE DROPS 3 TO 4 TIMES A DAY
     Dates: start: 201403
  7. PREDNISOLONE [Suspect]
     Dosage: 50 MG FOR 1 WEEK
  8. PREDNISOLONE [Suspect]
     Dosage: 20 MG, DAILY
     Dates: start: 20140331
  9. PREDNISOLONE [Suspect]
     Dosage: 50 MG, UNK
     Dates: start: 20140110, end: 20140218
  10. PREDNISOLONE [Suspect]
     Dosage: 40 MG, UNK
  11. PREDNISOLONE [Suspect]
     Dosage: 1 DROP, BID

REACTIONS (53)
  - Eye inflammation [Not Recovered/Not Resolved]
  - Eye swelling [Not Recovered/Not Resolved]
  - Vision blurred [Not Recovered/Not Resolved]
  - Arteritis [Not Recovered/Not Resolved]
  - Middle ear effusion [Not Recovered/Not Resolved]
  - Hearing impaired [Unknown]
  - Mydriasis [Not Recovered/Not Resolved]
  - Tremor [Not Recovered/Not Resolved]
  - Balance disorder [Recovering/Resolving]
  - Cold sweat [Not Recovered/Not Resolved]
  - Pain [Not Recovered/Not Resolved]
  - Ear pain [Unknown]
  - Judgement impaired [Not Recovered/Not Resolved]
  - Cough [Not Recovered/Not Resolved]
  - Speech disorder [Not Recovered/Not Resolved]
  - Dysphonia [Not Recovered/Not Resolved]
  - Brain scan abnormal [Not Recovered/Not Resolved]
  - Memory impairment [Not Recovered/Not Resolved]
  - Hyperchlorhydria [Not Recovered/Not Resolved]
  - Weight increased [Not Recovered/Not Resolved]
  - Immune system disorder [Not Recovered/Not Resolved]
  - Muscle spasms [Not Recovered/Not Resolved]
  - Ear infection [Unknown]
  - Swelling face [Recovering/Resolving]
  - Aneurysm [Recovered/Resolved]
  - Otorrhoea [Recovered/Resolved]
  - Eye pain [Recovering/Resolving]
  - Photophobia [Not Recovered/Not Resolved]
  - Pupillary reflex impaired [Unknown]
  - Swelling [Unknown]
  - Gastritis [Unknown]
  - Gastrooesophageal reflux disease [Unknown]
  - Fluid retention [Unknown]
  - Fall [Unknown]
  - Neck pain [Unknown]
  - Pain in jaw [Unknown]
  - Local swelling [Recovering/Resolving]
  - Visual acuity reduced [Unknown]
  - Facial pain [Unknown]
  - Abdominal pain upper [Unknown]
  - Headache [Not Recovered/Not Resolved]
  - Fatigue [Not Recovered/Not Resolved]
  - Feeling cold [Not Recovered/Not Resolved]
  - Malaise [Not Recovered/Not Resolved]
  - Rash [Not Recovered/Not Resolved]
  - Vaccination site swelling [Recovered/Resolved]
  - Vaccination site pain [Recovered/Resolved]
  - Vaccination site warmth [Recovered/Resolved]
  - Hyperhidrosis [Not Recovered/Not Resolved]
  - Musculoskeletal pain [Not Recovered/Not Resolved]
  - Chills [Not Recovered/Not Resolved]
  - Vaccination site erythema [Recovered/Resolved]
  - Asthenia [Not Recovered/Not Resolved]
